FAERS Safety Report 26045010 (Version 1)
Quarter: 2025Q4

REPORT INFORMATION
  Report Type: Report from Study
  Country: CN (occurrence: CN)
  Receive Date: 20251114
  Receipt Date: 20251114
  Transmission Date: 20260117
  Serious: Yes (Other)
  Sender: ROCHE
  Company Number: CN-ROCHE-10000433424

PATIENT

DRUGS (3)
  1. RITUXIMAB [Suspect]
     Active Substance: RITUXIMAB
     Indication: Central nervous system lymphoma
     Dosage: ON DAY 1 OF EACH CYCLE
     Route: 042
  2. THIOTEPA [Suspect]
     Active Substance: THIOTEPA
     Indication: Central nervous system lymphoma
     Dosage: ON DAY 1 OF EACH CYCLE
     Route: 065
  3. POMALIDOMIDE [Suspect]
     Active Substance: POMALIDOMIDE
     Indication: Central nervous system lymphoma
     Dosage: ON DAYS 1 THROUGH 14 OF EACH OF THE FIRST SIX CYCLES
     Route: 048

REACTIONS (1)
  - Haematotoxicity [Unknown]
